FAERS Safety Report 24011089 (Version 1)
Quarter: 2024Q2

REPORT INFORMATION
  Report Type: Report from Study
  Country: CA (occurrence: CA)
  Receive Date: 20240625
  Receipt Date: 20240625
  Transmission Date: 20240715
  Serious: Yes (Hospitalization)
  Sender: FDA-Public Use
  Company Number: CA-BoehringerIngelheim-2024-BI-034880

PATIENT
  Sex: Male

DRUGS (2)
  1. OFEV [Suspect]
     Active Substance: NINTEDANIB
     Indication: Product used for unknown indication
     Dosage: DAILY DOSE: 150 MILLIGRAM(S)
     Dates: start: 20220510
  2. CELEBREX [Suspect]
     Active Substance: CELECOXIB
     Indication: Product used for unknown indication

REACTIONS (4)
  - Haematochezia [Recovered/Resolved]
  - Renal failure [Recovered/Resolved]
  - Back pain [Not Recovered/Not Resolved]
  - Rib fracture [Not Recovered/Not Resolved]
